FAERS Safety Report 7307619-9 (Version None)
Quarter: 2011Q1

REPORT INFORMATION
  Report Type: 
  Country: None (occurrence: None)
  Receive Date: 20110223
  Receipt Date: 20110223
  Transmission Date: 20110831
  Serious: Yes (Death)
  Sender: FDA-Public Use
  Company Number: None

PATIENT
  Sex: Male

DRUGS (1)
  1. ALCOHOL PREP PADS [Suspect]
     Indication: THERAPEUTIC SKIN CARE TOPICAL

REACTIONS (1)
  - PRODUCT CONTAMINATION MICROBIAL [None]
